FAERS Safety Report 6565310-0 (Version None)
Quarter: 2010Q1

REPORT INFORMATION
  Report Type: 
  Country: None (occurrence: None)
  Receive Date: 20100201
  Receipt Date: 20100127
  Transmission Date: 20100710
  Serious: Yes (Hospitalization)
  Sender: FDA-Public Use
  Company Number: NO-ROCHE-682237

PATIENT
  Age: 23 Year
  Sex: Female

DRUGS (10)
  1. RIVOTRIL [Suspect]
     Route: 065
  2. ABILIFY [Suspect]
     Route: 065
     Dates: start: 20080401
  3. ABILIFY [Suspect]
     Route: 065
  4. ABILIFY [Suspect]
     Route: 065
  5. ABILIFY [Suspect]
     Route: 065
  6. ABILIFY [Suspect]
     Route: 065
     Dates: start: 20091201
  7. SEROQUEL [Suspect]
     Dosage: FREQUENCY: 25 MG+#215;2
     Route: 065
     Dates: start: 20080401
  8. IMOVANE [Suspect]
     Indication: SLEEP DISORDER
     Route: 065
  9. APODORM [Suspect]
     Indication: SLEEP DISORDER
     Route: 065
  10. LAMICTAL [Suspect]
     Indication: EPILEPTIC PSYCHOSIS
     Route: 065

REACTIONS (3)
  - MENTAL DISORDER [None]
  - NAUSEA [None]
  - VOMITING [None]
